FAERS Safety Report 25524654 (Version 3)
Quarter: 2025Q3

REPORT INFORMATION
  Report Type: Spontaneous
  Country: GB (occurrence: GB)
  Receive Date: 20250707
  Receipt Date: 20250911
  Transmission Date: 20251020
  Serious: Yes (Other)
  Sender: ROCHE
  Company Number: GB-ROCHE-10000317462

PATIENT
  Age: 60 Year
  Sex: Male

DRUGS (6)
  1. VABYSMO [Suspect]
     Active Substance: FARICIMAB-SVOA
     Indication: Retinal vein occlusion
     Route: 050
     Dates: start: 20250122, end: 20250402
  2. VABYSMO [Suspect]
     Active Substance: FARICIMAB-SVOA
     Indication: Diabetic retinal oedema
     Route: 050
     Dates: start: 20250122, end: 20250402
  3. VABYSMO [Suspect]
     Active Substance: FARICIMAB-SVOA
  4. VABYSMO [Suspect]
     Active Substance: FARICIMAB-SVOA
  5. EYLEA [Suspect]
     Active Substance: AFLIBERCEPT
     Indication: Retinal vein occlusion
     Route: 050
     Dates: start: 20201231, end: 20241113
  6. EYLEA [Suspect]
     Active Substance: AFLIBERCEPT
     Indication: Diabetic retinal oedema
     Route: 050
     Dates: start: 20220607, end: 20241113

REACTIONS (4)
  - Blindness [Not Recovered/Not Resolved]
  - Iridocyclitis [Not Recovered/Not Resolved]
  - Chorioretinitis [Not Recovered/Not Resolved]
  - Uveitis [Not Recovered/Not Resolved]

NARRATIVE: CASE EVENT DATE: 20250402
